FAERS Safety Report 4899206-7 (Version None)
Quarter: 2006Q1

REPORT INFORMATION
  Report Type: 
  Country: None (occurrence: None)
  Receive Date: 20060131
  Receipt Date: 20060118
  Transmission Date: 20060701
  Serious: Yes (Other)
  Sender: FDA-Public Use
  Company Number: 2006-0009126

PATIENT
  Age: 39 Year
  Sex: Male

DRUGS (6)
  1. HEPSERA [Suspect]
     Indication: HIV INFECTION
  2. EFAVIRENZ [Concomitant]
  3. ABACAVIR [Concomitant]
  4. TRIMETHOPRIM/SULFAMETHOXAZOLE (BACTRIM/00086101/) [Concomitant]
  5. NABUMETONE [Concomitant]
  6. PAROXETINE HCL [Concomitant]

REACTIONS (9)
  - BLOOD ALKALINE PHOSPHATASE INCREASED [None]
  - BLOOD CREATININE INCREASED [None]
  - BLOOD PHOSPHORUS DECREASED [None]
  - ELECTROLYTE IMBALANCE [None]
  - FANCONI SYNDROME [None]
  - GLYCOSURIA [None]
  - HYPOKALAEMIA [None]
  - METABOLIC ACIDOSIS [None]
  - OSTEOMALACIA [None]
